FAERS Safety Report 5898366-9 (Version None)
Quarter: 2008Q3

REPORT INFORMATION
  Report Type: 
  Country: None (occurrence: None)
  Receive Date: 20080925
  Receipt Date: 20071002
  Transmission Date: 20090109
  Serious: No
  Sender: FDA-Public Use
  Company Number: A0685645A

PATIENT
  Age: 40 Year
  Sex: Female

DRUGS (4)
  1. WELLBUTRIN XL [Suspect]
     Indication: DEPRESSION
     Dosage: 300MG PER DAY
     Route: 048
     Dates: start: 20070821, end: 20070930
  2. HORMONE REPLACEMENT THERAPY [Concomitant]
  3. TEGRETOL [Concomitant]
  4. PAROXETINE HCL [Concomitant]

REACTIONS (5)
  - ABNORMAL DREAMS [None]
  - ANXIETY [None]
  - CRYING [None]
  - IRRITABILITY [None]
  - MOOD SWINGS [None]
